FAERS Safety Report 20440348 (Version 1)
Quarter: 2022Q1

REPORT INFORMATION
  Report Type: Spontaneous
  Country: US (occurrence: US)
  Receive Date: 20220207
  Receipt Date: 20220207
  Transmission Date: 20220424
  Serious: Yes (Death)
  Sender: FDA-Public Use
  Company Number: US-PERRIGO-22US001706

PATIENT
  Age: 22 Year
  Sex: Male

DRUGS (5)
  1. MORPHINE SULFATE [Suspect]
     Active Substance: MORPHINE SULFATE
     Indication: Completed suicide
     Dosage: UNKNOWN, UNKNOWN
     Route: 050
  2. UNSPECIFIED INGREDIENT [Suspect]
     Active Substance: UNSPECIFIED INGREDIENT
     Indication: Completed suicide
     Dosage: UNKNOWN, UNKNOWN
     Route: 050
  3. SODIUM NITRATE [Suspect]
     Active Substance: SODIUM NITRATE
     Indication: Completed suicide
     Dosage: UNKNOWN, UNKNOWN
     Route: 050
  4. ESCITALOPRAM [Suspect]
     Active Substance: ESCITALOPRAM OXALATE
     Indication: Completed suicide
     Dosage: UNKNOWN, UNKNOWN
     Route: 050
  5. ALCOHOL [Suspect]
     Active Substance: ALCOHOL
     Indication: Completed suicide
     Dosage: UNKNOWN, UNKNOWN
     Route: 050

REACTIONS (1)
  - Exposure to toxic agent [Fatal]

NARRATIVE: CASE EVENT DATE: 20200101
